FAERS Safety Report 7463947-8 (Version None)
Quarter: 2011Q2

REPORT INFORMATION
  Report Type: 
  Country: None (occurrence: None)
  Receive Date: 20110506
  Receipt Date: 20110425
  Transmission Date: 20111010
  Serious: Yes (Other)
  Sender: FDA-Public Use
  Company Number: US-JNJFOC-20110410598

PATIENT
  Sex: Female

DRUGS (14)
  1. AMITRIPTYLINE [Concomitant]
  2. DARVOCET-N 50 [Concomitant]
  3. METOPROLOL SUCCINATE [Concomitant]
  4. SAVELLA [Concomitant]
  5. BIOTIN [Concomitant]
  6. MTX [Concomitant]
  7. BELLADONNA TINCTURE [Concomitant]
     Dosage: BELLA DONNE TINCTURE AS NEEDED
  8. LASIX [Concomitant]
  9. CYCLOBENZAPRINE [Concomitant]
  10. REMICADE [Suspect]
     Indication: RHEUMATOID ARTHRITIS
     Route: 042
  11. SERTRALINE [Concomitant]
  12. PRAVASTATIN [Concomitant]
  13. SINGULAIR [Concomitant]
  14. FOLIC ACID [Concomitant]

REACTIONS (4)
  - EXTRASYSTOLES [None]
  - DYSPNOEA [None]
  - WEIGHT INCREASED [None]
  - OEDEMA PERIPHERAL [None]
